FAERS Safety Report 7706491-2 (Version None)
Quarter: 2011Q3

REPORT INFORMATION
  Report Type: 
  Country: None (occurrence: None)
  Receive Date: 20110824
  Receipt Date: 20110816
  Transmission Date: 20111222
  Serious: Yes (Hospitalization, Other)
  Sender: FDA-Public Use
  Company Number: SE-AMGEN-KDC404043

PATIENT
  Age: 79 Year
  Sex: Male
  Weight: 78.985 kg

DRUGS (6)
  1. BLINDED DARBEPOETIN ALFA [Suspect]
     Indication: CARDIAC FAILURE
     Dosage: UNK UNK, QMO
     Route: 058
     Dates: start: 20070327, end: 20080825
  2. BLINDED PLACEBO [Suspect]
     Indication: CARDIAC FAILURE
     Dosage: UNK UNK, QMO
     Route: 058
     Dates: start: 20070327, end: 20080825
  3. RAMIPRIL [Concomitant]
  4. METOPROLOL TARTRATE [Concomitant]
     Dosage: UNK
     Dates: start: 20070327, end: 20080825
  5. AMLODIPINE [Concomitant]
  6. ASPIRIN [Concomitant]

REACTIONS (2)
  - METASTASES TO LIVER [None]
  - SMALL CELL LUNG CANCER STAGE UNSPECIFIED [None]
